FAERS Safety Report 11772996 (Version 1)
Quarter: 2015Q4

REPORT INFORMATION
  Report Type: Spontaneous
  Country: US (occurrence: None)
  Receive Date: 20151123
  Receipt Date: 20151123
  Transmission Date: 20160304
  Serious: Yes (Life-Threatening, Hospitalization)
  Sender: FDA-Public Use
  Company Number: None

PATIENT
  Age: 44 Year
  Sex: Male
  Weight: 102.5 kg

DRUGS (1)
  1. ABACAVIR/DOLUTEGRAVIR/LAMIVUDINE [Suspect]
     Active Substance: ABACAVIR SULFATE\DOLUTEGRAVIR SODIUM\LAMIVUDINE
     Indication: HIV INFECTION
     Route: 048
     Dates: start: 20140912

REACTIONS (3)
  - Subarachnoid haemorrhage [None]
  - Headache [None]
  - Haemorrhage intracranial [None]

NARRATIVE: CASE EVENT DATE: 20151104
